FAERS Safety Report 8180200-8 (Version None)
Quarter: 2012Q1

REPORT INFORMATION
  Report Type: 
  Country: None (occurrence: None)
  Receive Date: 20120229
  Receipt Date: 20120201
  Transmission Date: 20120608
  Serious: Yes (Hospitalization)
  Sender: FDA-Public Use
  Company Number: 2012PROUSA01026

PATIENT
  Age: 76 Year
  Sex: Male

DRUGS (2)
  1. PROVENGE [Suspect]
     Indication: PROSTATE CANCER METASTATIC
     Dosage: 250 ML, SINGLE, INTRAVENOUS
     Route: 042
     Dates: start: 20120123, end: 20120123
  2. AMLODIPINE [Suspect]
     Indication: HYPERTENSION
     Dosage: UNK
     Dates: start: 20120125

REACTIONS (2)
  - MALAISE [None]
  - FACE OEDEMA [None]
